FAERS Safety Report 6461766-2 (Version None)
Quarter: 2009Q4

REPORT INFORMATION
  Report Type: 
  Country: None (occurrence: None)
  Receive Date: 20091130
  Receipt Date: 20091117
  Transmission Date: 20100525
  Serious: Yes (Congenital Anomaly)
  Sender: FDA-Public Use
  Company Number: PHHY2009FR51077

PATIENT
  Sex: Male

DRUGS (2)
  1. TEGRETOL [Suspect]
     Route: 064
  2. HALDOL DECANOAS [Suspect]
     Route: 064

REACTIONS (13)
  - ANOTIA [None]
  - BRADYCARDIA NEONATAL [None]
  - CARDIAC MALPOSITION [None]
  - CARDIAC SEPTAL DEFECT [None]
  - CONGENITAL HAND MALFORMATION [None]
  - CONGENITAL ORAL MALFORMATION [None]
  - DRUG EXPOSURE DURING PREGNANCY [None]
  - HEART DISEASE CONGENITAL [None]
  - MICROTIA [None]
  - MULTIPLE CONGENITAL ABNORMALITIES [None]
  - PELVIC KIDNEY [None]
  - PULMONARY ARTERY STENOSIS CONGENITAL [None]
  - RENAL APLASIA [None]
